FAERS Safety Report 7329514-1 (Version None)
Quarter: 2011Q1

REPORT INFORMATION
  Report Type: 
  Country: None (occurrence: None)
  Receive Date: 20110303
  Receipt Date: 20110216
  Transmission Date: 20110831
  Serious: Yes (Hospitalization)
  Sender: FDA-Public Use
  Company Number: PHHO2011DE03164

PATIENT
  Sex: Female
  Weight: 55 kg

DRUGS (4)
  1. SANDIMMUNE [Suspect]
     Indication: RENAL TRANSPLANT
     Dosage: 120 MG, BID
     Route: 048
     Dates: start: 20100408
  2. MYCOPHENOLIC ACID [Suspect]
     Indication: RENAL TRANSPLANT
     Dosage: 360 MG, BID
     Route: 048
     Dates: start: 20100317
  3. NO TREATMENT RECEIVED [Suspect]
     Indication: RENAL TRANSPLANT
     Dosage: NO TREATMENT
  4. URBASON [Concomitant]
     Indication: RENAL TRANSPLANT
     Dosage: 16 MG, 1-0-0
     Route: 048
     Dates: start: 20100413

REACTIONS (5)
  - IATROGENIC INJURY [None]
  - SUTURE INSERTION [None]
  - SURGERY [None]
  - LYMPHOCELE [None]
  - ABDOMINAL CAVITY DRAINAGE [None]
